FAERS Safety Report 17628521 (Version 5)
Quarter: 2020Q2

REPORT INFORMATION
  Report Type: Report from Study
  Country: BR (occurrence: BR)
  Receive Date: 20200406
  Receipt Date: 20200519
  Transmission Date: 20200713
  Serious: Yes (Other)
  Sender: FDA-Public Use
  Company Number: BR-AMGEN-BRACT2020055999

PATIENT
  Age: 32 Year
  Sex: Female

DRUGS (7)
  1. DIPYRONE [Concomitant]
     Active Substance: DIPYRONE
     Indication: PRODUCT USED FOR UNKNOWN INDICATION
     Dosage: 300 MILLIGRAM
     Route: 065
     Dates: start: 20200325
  2. PASURTA [Suspect]
     Active Substance: ERENUMAB
     Dosage: UNK
     Route: 065
     Dates: start: 20200302
  3. PASURTA [Suspect]
     Active Substance: ERENUMAB
     Indication: MIGRAINE
     Dosage: UNK
     Route: 065
  4. PROPRANOLOL [Concomitant]
     Active Substance: PROPRANOLOL HYDROCHLORIDE
     Indication: PRODUCT USED FOR UNKNOWN INDICATION
     Dosage: 10 MILLIGRAM
     Route: 065
  5. NORTRIPTYLINE [Concomitant]
     Active Substance: NORTRIPTYLINE
     Indication: PRODUCT USED FOR UNKNOWN INDICATION
     Dosage: 24 MILLIGRAM
     Route: 065
  6. PASURTA [Suspect]
     Active Substance: ERENUMAB
     Dosage: UNK
     Route: 065
     Dates: start: 20200303
  7. CODEINE [Concomitant]
     Active Substance: CODEINE
     Indication: PRODUCT USED FOR UNKNOWN INDICATION
     Dosage: 5 MILLIGRAM
     Route: 065

REACTIONS (25)
  - Somnolence [Recovered/Resolved]
  - Hypotension [Unknown]
  - Product storage error [Unknown]
  - Blood pressure decreased [Unknown]
  - Pyrexia [Recovering/Resolving]
  - Haemorrhage [Unknown]
  - Decreased immune responsiveness [Unknown]
  - Systemic lupus erythematosus [Not Recovered/Not Resolved]
  - Menstrual disorder [Recovering/Resolving]
  - Anxiety [Unknown]
  - Throat irritation [Recovering/Resolving]
  - Influenza [Recovered/Resolved]
  - Hypotension [Recovered/Resolved]
  - Pain [Recovering/Resolving]
  - Rhinitis [Recovering/Resolving]
  - Osteoarthritis [Not Recovered/Not Resolved]
  - Inflammation [Not Recovered/Not Resolved]
  - Menstruation delayed [Recovering/Resolving]
  - Influenza [Not Recovered/Not Resolved]
  - Affective disorder [Unknown]
  - Concomitant disease aggravated [Not Recovered/Not Resolved]
  - Hypertension [Unknown]
  - Cough [Not Recovered/Not Resolved]
  - Headache [Not Recovered/Not Resolved]
  - Migraine [Not Recovered/Not Resolved]

NARRATIVE: CASE EVENT DATE: 202003
